FAERS Safety Report 21308804 (Version 1)
Quarter: 2022Q3

REPORT INFORMATION
  Report Type: Spontaneous
  Country: None (occurrence: CA)
  Receive Date: 20220908
  Receipt Date: 20220908
  Transmission Date: 20221026
  Serious: Yes (Life-Threatening, Hospitalization, Other)
  Sender: FDA-Public Use
  Company Number: CA-B.Braun Medical Inc.-2132672

PATIENT
  Sex: Male

DRUGS (21)
  1. DEXTROSE MONOHYDRATE\THEOPHYLLINE\THEOPHYLLINE ANHYDROUS [Suspect]
     Active Substance: DEXTROSE MONOHYDRATE\THEOPHYLLINE\THEOPHYLLINE ANHYDROUS
  2. ASPIRIN [Suspect]
     Active Substance: ASPIRIN
  3. ALENDRONATE SODIUM [Suspect]
     Active Substance: ALENDRONATE SODIUM
  4. ALENDRONATE SODIUM\CHOLECALCIFEROL [Suspect]
     Active Substance: ALENDRONATE SODIUM\CHOLECALCIFEROL
  5. ALLOPURINOL [Suspect]
     Active Substance: ALLOPURINOL
  6. APIXABAN [Suspect]
     Active Substance: APIXABAN
  7. BISOPROLOL. [Suspect]
     Active Substance: BISOPROLOL FUMARATE
  8. BREO ELLIPTA [Concomitant]
     Active Substance: FLUTICASONE FUROATE\VILANTEROL TRIFENATATE
  9. FINASTERIDE [Suspect]
     Active Substance: FINASTERIDE
  10. FUROSEMIDE [Suspect]
     Active Substance: FUROSEMIDE
  11. GABAPENTIN [Suspect]
     Active Substance: GABAPENTIN
  12. MONTELUKAST SODIUM [Suspect]
     Active Substance: MONTELUKAST SODIUM
  13. OLMESARTAN MEDOXOMIL [Suspect]
     Active Substance: OLMESARTAN MEDOXOMIL
  14. PANTOPRAZOLE [Suspect]
     Active Substance: PANTOPRAZOLE
  15. PREDNISONE [Suspect]
     Active Substance: PREDNISONE
  16. ALBUTEROL [Suspect]
     Active Substance: ALBUTEROL
  17. SPIRIVA [Suspect]
     Active Substance: TIOTROPIUM BROMIDE MONOHYDRATE
  18. TAMSULOSIN HYDROCHLORIDE [Suspect]
     Active Substance: TAMSULOSIN HYDROCHLORIDE
  19. UMECLIDINIUM BROMIDE [Suspect]
     Active Substance: UMECLIDINIUM BROMIDE
  20. VITAMIN D3 [Suspect]
     Active Substance: CHOLECALCIFEROL
  21. ZENHALE [Suspect]
     Active Substance: FORMOTEROL FUMARATE\MOMETASONE FUROATE

REACTIONS (33)
  - Adverse event [None]
  - Anxiety [None]
  - Aortic valve stenosis [None]
  - Asthma [None]
  - Atrial fibrillation [None]
  - Benign prostatic hyperplasia [None]
  - Bronchial secretion retention [None]
  - Bronchial wall thickening [None]
  - Bronchiectasis [None]
  - Cardiac failure congestive [None]
  - Chest X-ray abnormal [None]
  - Cough [None]
  - Depression [None]
  - Diastolic dysfunction [None]
  - Dizziness [None]
  - Dyspnoea [None]
  - Fatigue [None]
  - Full blood count abnormal [None]
  - Gastrooesophageal reflux disease [None]
  - Gout [None]
  - Hypertension [None]
  - Hypoacusis [None]
  - Intervertebral disc degeneration [None]
  - Loss of personal independence in daily activities [None]
  - Obstruction [None]
  - Pain in extremity [None]
  - Productive cough [None]
  - Pulmonary function test abnormal [None]
  - Right atrial hypertrophy [None]
  - Right ventricular hypertrophy [None]
  - Sleep apnoea syndrome [None]
  - Therapeutic product effect incomplete [None]
  - Wheezing [None]
